FAERS Safety Report 8617423 (Version 5)
Quarter: 2012Q4

REPORT INFORMATION
  Report Type: 
  Country: US (occurrence: US)
  Receive Date: 20120615
  Receipt Date: 20121002
  Transmission Date: 20130627
  Serious: Yes (Other)
  Sender: FDA-Public Use
  Company Number: US-ABBOTT-12P-163-0943644-00

PATIENT
  Age: 30 None
  Sex: Female
  Weight: 59.47 kg

DRUGS (5)
  1. HUMIRA [Suspect]
     Indication: CROHN^S DISEASE
     Route: 058
     Dates: start: 201203, end: 20120424
  2. IMURAN [Concomitant]
     Indication: PRODUCT USED FOR UNKNOWN INDICATION
     Dates: start: 2010, end: 20120424
  3. PREDNISONE [Concomitant]
     Indication: PRODUCT USED FOR UNKNOWN INDICATION
     Dosage: Tapering
     Dates: start: 201202
  4. CELEXA [Concomitant]
     Indication: PRODUCT USED FOR UNKNOWN INDICATION
  5. ALLEGRA [Concomitant]
     Indication: SEASONAL ALLERGY

REACTIONS (3)
  - Non-Hodgkin^s lymphoma [Unknown]
  - Lymphadenopathy [Unknown]
  - Lymph node pain [Unknown]
